FAERS Safety Report 11366286 (Version 1)
Quarter: 2015Q3

REPORT INFORMATION
  Report Type: Report from Study
  Country: JP (occurrence: JP)
  Receive Date: 20150811
  Receipt Date: 20150811
  Transmission Date: 20151125
  Serious: Yes (Hospitalization, Other)
  Sender: FDA-Public Use
  Company Number: JP-GILEAD-2015-0143306

PATIENT
  Age: 20 Year
  Sex: Male

DRUGS (26)
  1. CRAVIT [Concomitant]
     Active Substance: LEVOFLOXACIN
     Dosage: UNK
     Dates: start: 20140407, end: 20140414
  2. SOLDEM 3A [Concomitant]
     Active Substance: CARBOHYDRATES\POTASSIUM CHLORIDE\SODIUM CHLORIDE\SODIUM LACTATE
     Dosage: UNK
     Dates: start: 20141212, end: 20141218
  3. PERIACTIN [Concomitant]
     Active Substance: CYPROHEPTADINE HYDROCHLORIDE
     Dosage: UNK
     Dates: start: 20140207, end: 20140213
  4. VENOGLOBULIN-IH [Concomitant]
     Dosage: UNK
     Dates: start: 20140409, end: 20140410
  5. MUCOSOLVAN DS [Concomitant]
     Dosage: UNK
     Dates: start: 20141212, end: 20141217
  6. ADSORBIN [Concomitant]
     Active Substance: ALUMINUM SILICATE
     Dosage: UNK
  7. ADCIRCA [Concomitant]
     Active Substance: TADALAFIL
     Indication: PULMONARY ARTERIAL HYPERTENSION
     Dosage: UNK
  8. ZYLORIC [Concomitant]
     Active Substance: ALLOPURINOL
     Dosage: UNK
  9. MIYA-BM [Concomitant]
     Active Substance: CLOSTRIDIUM BUTYRICUM SPORES STRAIN M-55
     Dosage: UNK
     Dates: start: 20140718, end: 20140731
  10. MIYA-BM [Concomitant]
     Active Substance: CLOSTRIDIUM BUTYRICUM SPORES STRAIN M-55
     Dosage: UNK
     Dates: start: 20140829, end: 20141106
  11. SULBACILLIN [Concomitant]
     Active Substance: AMPICILLIN SODIUM\SULBACTAM SODIUM
     Dosage: UNK
     Dates: start: 20141212, end: 20141217
  12. MUCODYNE [Concomitant]
     Active Substance: CARBOCYSTEINE
     Dosage: UNK
     Dates: start: 20140207, end: 20140213
  13. SOLDEM 3A [Concomitant]
     Active Substance: CARBOHYDRATES\POTASSIUM CHLORIDE\SODIUM CHLORIDE\SODIUM LACTATE
     Dosage: UNK
     Dates: start: 20140407, end: 20140414
  14. MUCOSOLVAN DS [Concomitant]
     Dosage: UNK
     Dates: start: 20140407, end: 20140425
  15. CHINESE MEDICINE [Concomitant]
     Active Substance: UNSPECIFIED INGREDIENT
     Dosage: UNK
     Dates: start: 20141215, end: 20141220
  16. AMBRISENTAN [Suspect]
     Active Substance: AMBRISENTAN
     Indication: PULMONARY ARTERIAL HYPERTENSION
     Dosage: 5 MG, QD
     Route: 048
     Dates: start: 20131213
  17. ZYLORIC [Concomitant]
     Active Substance: ALLOPURINOL
     Dosage: UNK
  18. MUCODYNE [Concomitant]
     Active Substance: CARBOCYSTEINE
     Dosage: UNK
     Dates: start: 20140407, end: 20140425
  19. BIOFERMIN                          /07958301/ [Concomitant]
     Dosage: UNK
     Dates: start: 20141215, end: 20141220
  20. MUCODYNE [Concomitant]
     Active Substance: CARBOCYSTEINE
     Dosage: UNK
     Dates: start: 20141212, end: 20141217
  21. ASVERIN                            /00465502/ [Concomitant]
     Dosage: UNK
     Dates: start: 20141212, end: 20141217
  22. ASPIRIN                            /00002701/ [Concomitant]
     Active Substance: ASPIRIN
     Indication: THROMBOSIS PROPHYLAXIS
     Dosage: UNK
  23. FLOMOX                             /01418603/ [Concomitant]
     Dosage: UNK
     Dates: start: 20140207, end: 20140213
  24. MIYA-BM [Concomitant]
     Active Substance: CLOSTRIDIUM BUTYRICUM SPORES STRAIN M-55
     Dosage: UNK
     Dates: start: 20140407, end: 20140414
  25. ASVERIN                            /00465502/ [Concomitant]
     Dosage: UNK
     Dates: start: 20140407, end: 20140425
  26. ADSORBIN [Concomitant]
     Active Substance: ALUMINUM SILICATE
     Dosage: UNK
     Dates: start: 20140718, end: 20140731

REACTIONS (5)
  - Pneumonia [Recovered/Resolved]
  - Gastroenteritis [Recovered/Resolved]
  - Pneumonia [Recovered/Resolved]
  - Upper respiratory tract inflammation [Recovered/Resolved]
  - Diarrhoea [Recovering/Resolving]

NARRATIVE: CASE EVENT DATE: 20140207
